FAERS Safety Report 7742842-0 (Version None)
Quarter: 2011Q3

REPORT INFORMATION
  Report Type: 
  Country: None (occurrence: None)
  Receive Date: 20110912
  Receipt Date: 20110902
  Transmission Date: 20111222
  Serious: Yes (Hospitalization)
  Sender: FDA-Public Use
  Company Number: ES-JNJFOC-20110812824

PATIENT
  Sex: Female
  Weight: 68.6 kg

DRUGS (4)
  1. TOPAMAX [Suspect]
     Route: 048
     Dates: start: 20100901
  2. TOPAMAX [Suspect]
     Indication: PARTIAL SEIZURES
     Dosage: 100-0-100
     Route: 048
     Dates: start: 20020101
  3. VALPROIC ACID [Interacting]
     Indication: EPILEPSY
     Route: 065
     Dates: start: 20020101, end: 20100901
  4. PHENOBARBITAL TAB [Interacting]
     Indication: EPILEPSY
     Route: 065
     Dates: start: 20020101

REACTIONS (3)
  - HYPERAMMONAEMIC ENCEPHALOPATHY [None]
  - DRUG INTERACTION [None]
  - APHASIA [None]
